FAERS Safety Report 7169472-6 (Version None)
Quarter: 2010Q4

REPORT INFORMATION
  Report Type: 
  Country: None (occurrence: None)
  Receive Date: 20101217
  Receipt Date: 20101209
  Transmission Date: 20110411
  Serious: Yes (Hospitalization)
  Sender: FDA-Public Use
  Company Number: US-BIOGENIDEC-2010BI028481

PATIENT
  Age: 70 Year
  Sex: Female

DRUGS (2)
  1. AVONEX [Suspect]
     Indication: MULTIPLE SCLEROSIS
     Route: 030
     Dates: start: 20011026
  2. AVONEX [Suspect]
     Route: 030
     Dates: start: 20100301

REACTIONS (4)
  - FALL [None]
  - LOWER LIMB FRACTURE [None]
  - PNEUMONIA [None]
  - URINARY TRACT INFECTION [None]
